FAERS Safety Report 5395657-5 (Version None)
Quarter: 2007Q3

REPORT INFORMATION
  Report Type: 
  Country: None (occurrence: None)
  Receive Date: 20070724
  Receipt Date: 20070717
  Transmission Date: 20080115
  Serious: Yes (Death)
  Sender: FDA-Public Use
  Company Number: GB-ROXANE LABORATORIES, INC-2007-BP-17632RO

PATIENT
  Age: 5 Year
  Sex: Female
  Weight: 14.2 kg

DRUGS (5)
  1. FLUTICASONE PROPIONATE [Suspect]
     Indication: ASTHMA
     Dosage: DOSES OF 500-2000 MCG/D X 4 YEARS
     Route: 055
  2. MONTELUKAST SODIUM [Concomitant]
     Indication: ASTHMA
  3. SERETIDE [Concomitant]
     Indication: ASTHMA
     Route: 055
  4. SODIUM CROMOGLYCATE [Concomitant]
  5. SLO-PHYLLIN [Concomitant]
     Indication: ASTHMA
     Route: 048

REACTIONS (15)
  - ABDOMINAL PAIN [None]
  - ADRENAL SUPPRESSION [None]
  - CARDIOGENIC SHOCK [None]
  - DEPRESSED LEVEL OF CONSCIOUSNESS [None]
  - DISORIENTATION [None]
  - ENCEPHALOPATHY [None]
  - GLASGOW COMA SCALE ABNORMAL [None]
  - GRAND MAL CONVULSION [None]
  - HEADACHE [None]
  - HYPONATRAEMIA [None]
  - IRRITABILITY [None]
  - PUPILLARY REFLEX IMPAIRED [None]
  - RESPIRATORY ARREST [None]
  - VISUAL ACUITY REDUCED [None]
  - VOMITING [None]
